FAERS Safety Report 5611114-2 (Version None)
Quarter: 2008Q1

REPORT INFORMATION
  Report Type: 
  Country: None (occurrence: None)
  Receive Date: 20080201
  Receipt Date: 20080122
  Transmission Date: 20080703
  Serious: Yes (Hospitalization, Disabling)
  Sender: FDA-Public Use
  Company Number: JP-MERCK-0707USA02624

PATIENT
  Age: 9 Year
  Sex: Male
  Weight: 38 kg

DRUGS (13)
  1. COZAAR [Suspect]
     Indication: HYPERTENSION
     Route: 048
     Dates: start: 20041021
  2. PRINIVIL [Concomitant]
     Route: 048
  3. AMLODIPINE BESYLATE [Suspect]
     Route: 048
     Dates: start: 20030730
  4. LASIX [Suspect]
     Route: 048
     Dates: start: 20030804
  5. ALLOPURINOL [Suspect]
     Route: 048
     Dates: start: 20050616
  6. [THERAPY UNSPECIFIED] [Concomitant]
     Route: 065
  7. URINORM [Suspect]
     Route: 048
     Dates: start: 20040318
  8. URALYT [Suspect]
     Route: 048
     Dates: start: 20041021
  9. FERROMIA [Suspect]
     Route: 065
     Dates: start: 20050811
  10. SEPAMIT [Suspect]
     Route: 048
     Dates: start: 20060515
  11. LOPRESSOR [Suspect]
     Route: 048
     Dates: start: 20060612
  12. ALFAROL [Suspect]
     Route: 048
     Dates: start: 20070329
  13. CALTAN [Suspect]
     Route: 048
     Dates: start: 20070920

REACTIONS (3)
  - HYPOTHYROIDISM [None]
  - OVERDOSE [None]
  - THYROIDITIS [None]
